FAERS Safety Report 16610135 (Version 1)
Quarter: 2019Q3

REPORT INFORMATION
  Report Type: Spontaneous
  Country: US (occurrence: US)
  Receive Date: 20190722
  Receipt Date: 20190722
  Transmission Date: 20191004
  Serious: Yes (Hospitalization, Other)
  Sender: FDA-Public Use
  Company Number: US-JNJFOC-20190713727

PATIENT
  Age: 62 Year
  Sex: Male
  Weight: 102.15 kg

DRUGS (4)
  1. EZETIMIBE. [Concomitant]
     Active Substance: EZETIMIBE
  2. XARELTO [Suspect]
     Active Substance: RIVAROXABAN
     Indication: ARRHYTHMIA
     Dosage: SERIAL NUMBER: 100000938304
     Route: 048
     Dates: start: 201712
  3. ATORVASTATIN [Concomitant]
     Active Substance: ATORVASTATIN
  4. LISINOPRIL. [Concomitant]
     Active Substance: LISINOPRIL

REACTIONS (7)
  - Fall [Unknown]
  - Intra-abdominal haemorrhage [Recovered/Resolved]
  - Rib fracture [Unknown]
  - Pulmonary haemorrhage [Unknown]
  - Chest pain [Unknown]
  - Therapeutic response unexpected [Unknown]
  - Splenic haemorrhage [Recovered/Resolved]

NARRATIVE: CASE EVENT DATE: 20190321
